FAERS Safety Report 11233554 (Version 2)
Quarter: 2015Q3

REPORT INFORMATION
  Report Type: Spontaneous
  Country: US (occurrence: US)
  Receive Date: 20150702
  Receipt Date: 20150707
  Transmission Date: 20151125
  Serious: No
  Sender: FDA-Public Use
  Company Number: US-AMGEN-USASP2015063845

PATIENT
  Age: 42 Year
  Sex: Female

DRUGS (3)
  1. LISINOPRIL. [Suspect]
     Active Substance: LISINOPRIL
     Indication: PRODUCT USED FOR UNKNOWN INDICATION
     Dosage: UNK
     Route: 065
  2. HUMIRA [Suspect]
     Active Substance: ADALIMUMAB
     Indication: PRODUCT USED FOR UNKNOWN INDICATION
     Dosage: UNK
     Route: 065
  3. ENBREL [Suspect]
     Active Substance: ETANERCEPT
     Indication: ANKYLOSING SPONDYLITIS
     Dosage: 50 MG, QWK
     Route: 065
     Dates: start: 20030901, end: 20150618

REACTIONS (19)
  - Drug effect incomplete [Not Recovered/Not Resolved]
  - H1N1 influenza [Recovered/Resolved]
  - Pain [Not Recovered/Not Resolved]
  - Drug dose omission [Recovered/Resolved]
  - Adverse drug reaction [Recovered/Resolved]
  - Scar [Recovered/Resolved]
  - Anxiety [Recovered/Resolved]
  - Fatigue [Recovered/Resolved]
  - Influenza [Recovered/Resolved]
  - Injection site reaction [Not Recovered/Not Resolved]
  - Menopause [Recovered/Resolved]
  - Sinusitis [Not Recovered/Not Resolved]
  - Stress [Recovered/Resolved]
  - Injection site pain [Not Recovered/Not Resolved]
  - Pain of skin [Recovered/Resolved]
  - Visual acuity reduced [Not Recovered/Not Resolved]
  - Hypertension [Recovered/Resolved]
  - Herpes simplex [Not Recovered/Not Resolved]
  - Paraesthesia [Recovered/Resolved]

NARRATIVE: CASE EVENT DATE: 200903
